FAERS Safety Report 7724454 (Version 2)
Quarter: 2012Q4

REPORT INFORMATION
  Report Type: 
  Country: US (occurrence: US)
  Receive Date: 20101221
  Receipt Date: 20121212
  Transmission Date: 20130627
  Serious: Yes (Other)
  Sender: FDA-Public Use
  Company Number: US-ROCHE-727315

PATIENT
  Age: 16 Year
  Sex: Female
  Weight: 65.8 kg

DRUGS (8)
  1. ACCUTANE [Suspect]
     Indication: ACNE
     Route: 065
  2. ACCUTANE [Suspect]
     Route: 065
  3. ACCUTANE [Suspect]
     Route: 065
     Dates: start: 19981117, end: 199902
  4. ACCUTANE [Suspect]
     Route: 065
     Dates: start: 200002, end: 200006
  5. ACCUTANE [Suspect]
     Route: 065
     Dates: start: 200012, end: 200104
  6. ACCUTANE [Suspect]
     Route: 065
  7. ACCUTANE [Suspect]
     Route: 065
  8. YASMIN [Concomitant]

REACTIONS (8)
  - Rash pruritic [Unknown]
  - Gastrointestinal injury [Unknown]
  - Crohn^s disease [Unknown]
  - Proctitis [Unknown]
  - Anal fissure [Unknown]
  - Rhinitis allergic [Unknown]
  - Blood cholesterol increased [Unknown]
  - Acne [Unknown]
